FAERS Safety Report 12520721 (Version 1)
Quarter: 2016Q2

REPORT INFORMATION
  Report Type: Spontaneous
  Country: US (occurrence: None)
  Receive Date: 20160630
  Receipt Date: 20160630
  Transmission Date: 20160815
  Serious: No
  Sender: FDA-Public Use
  Company Number: None

PATIENT
  Age: 42 Year
  Sex: Male

DRUGS (23)
  1. GABAPENTIN. [Concomitant]
     Active Substance: GABAPENTIN
  2. METHOTREXATE [Concomitant]
     Active Substance: METHOTREXATE
  3. ALLEGRA [Concomitant]
     Active Substance: FEXOFENADINE HYDROCHLORIDE
  4. CALCIUM [Concomitant]
     Active Substance: CALCIUM
  5. TYLENOL [Concomitant]
     Active Substance: ACETAMINOPHEN
  6. NORVASC [Concomitant]
     Active Substance: AMLODIPINE BESYLATE
  7. LISINOPRIL. [Concomitant]
     Active Substance: LISINOPRIL
  8. RESTASIS [Concomitant]
     Active Substance: CYCLOSPORINE
  9. ZANTAC [Concomitant]
     Active Substance: RANITIDINE HYDROCHLORIDE
  10. XELJANZ [Suspect]
     Active Substance: TOFACITINIB CITRATE
     Indication: RHEUMATOID ARTHRITIS
     Dosage: 1 TABLET BID BY MOUTH
     Route: 048
     Dates: start: 20150723
  11. EFFEXOR [Concomitant]
     Active Substance: VENLAFAXINE HYDROCHLORIDE
  12. LEFLUNOMIDE. [Concomitant]
     Active Substance: LEFLUNOMIDE
  13. ADVAIR HFA [Concomitant]
     Active Substance: FLUTICASONE PROPIONATE\SALMETEROL XINAFOATE
  14. BELSOMRA [Concomitant]
     Active Substance: SUVOREXANT
  15. ZOFRAN [Concomitant]
     Active Substance: ONDANSETRON HYDROCHLORIDE
  16. RASUVO [Concomitant]
     Active Substance: METHOTREXATE SODIUM
  17. PREDNISONE. [Concomitant]
     Active Substance: PREDNISONE
  18. VITAMIN B12 [Concomitant]
     Active Substance: CYANOCOBALAMIN
  19. PROAIR HFA [Concomitant]
     Active Substance: ALBUTEROL SULFATE
  20. TOPAMAX [Concomitant]
     Active Substance: TOPIRAMATE
  21. CEVIMELINE. [Concomitant]
     Active Substance: CEVIMELINE
  22. VALIUM [Concomitant]
     Active Substance: DIAZEPAM
  23. DEXILANT [Concomitant]
     Active Substance: DEXLANSOPRAZOLE

REACTIONS (1)
  - Condition aggravated [None]

NARRATIVE: CASE EVENT DATE: 2014
